FAERS Safety Report 7278001-8 (Version None)
Quarter: 2011Q1

REPORT INFORMATION
  Report Type: 
  Country: None (occurrence: None)
  Receive Date: 20110207
  Receipt Date: 20110126
  Transmission Date: 20110831
  Serious: Yes (Death, Other)
  Sender: FDA-Public Use
  Company Number: PHHY2011GB06274

PATIENT
  Age: 68 Year
  Sex: Male

DRUGS (3)
  1. PARACETAMOL [Suspect]
     Dosage: UNK
  2. DILTIAZEM [Suspect]
     Dosage: UNK
  3. TRIFLUOPERAZINE HCL [Suspect]
     Dosage: UNK MG, UNK

REACTIONS (3)
  - OVERDOSE [None]
  - DRUG LEVEL ABOVE THERAPEUTIC [None]
  - DEATH [None]
